FAERS Safety Report 8510550-4 (Version None)
Quarter: 2012Q3

REPORT INFORMATION
  Report Type: 
  Country: None (occurrence: None)
  Receive Date: 20120716
  Receipt Date: 20120705
  Transmission Date: 20120928
  Serious: Yes (Congenital Anomaly, Other)
  Sender: FDA-Public Use
  Company Number: US-BIOGENIDEC-2012BI006708

PATIENT
  Sex: Female
  Weight: 3 kg

DRUGS (1)
  1. TYSABRI [Suspect]
     Indication: MATERNAL EXPOSURE TIMING UNSPECIFIED
     Route: 042
     Dates: start: 20080211, end: 20110411

REACTIONS (3)
  - CONGENITAL TORTICOLLIS [None]
  - HYDRONEPHROSIS [None]
  - PLAGIOCEPHALY [None]
